FAERS Safety Report 13132968 (Version 1)
Quarter: 2017Q1

REPORT INFORMATION
  Report Type: Spontaneous
  Country: US (occurrence: US)
  Receive Date: 20170120
  Receipt Date: 20170120
  Transmission Date: 20170428
  Serious: Yes (Hospitalization)
  Sender: FDA-Public Use
  Company Number: PHHY2017US007922

PATIENT
  Age: 24 Year
  Sex: Male

DRUGS (5)
  1. BACLOFEN INTRATHECAL [Suspect]
     Active Substance: BACLOFEN
     Indication: HYPERTONIA
     Dosage: 75.10 UG, QD
     Route: 037
  2. SERTRALINE [Suspect]
     Active Substance: SERTRALINE HYDROCHLORIDE
     Dosage: 100 MG, UNK
     Route: 065
  3. BACLOFEN INTRATHECAL [Suspect]
     Active Substance: BACLOFEN
     Dosage: 98.04 UG, QD
     Route: 037
  4. SERTRALINE [Suspect]
     Active Substance: SERTRALINE HYDROCHLORIDE
     Indication: DEPRESSION
     Dosage: 50 MG, UNK
     Route: 065
  5. BACLOFEN INTRATHECAL [Suspect]
     Active Substance: BACLOFEN
     Dosage: 75.10 UG, QD
     Route: 037

REACTIONS (4)
  - Abnormal behaviour [Recovered/Resolved]
  - Delusion of grandeur [Recovered/Resolved]
  - Hallucination, auditory [Recovered/Resolved]
  - Substance-induced psychotic disorder [Recovered/Resolved]
